FAERS Safety Report 21669928 (Version 1)
Quarter: 2022Q4

REPORT INFORMATION
  Report Type: Spontaneous
  Country: US (occurrence: US)
  Receive Date: 20221201
  Receipt Date: 20221201
  Transmission Date: 20230113
  Serious: Yes (Other)
  Sender: FDA-Public Use
  Company Number: US-PFIZER INC-202201337353

PATIENT
  Age: 92 Year
  Sex: Female
  Weight: 67.13 kg

DRUGS (2)
  1. PAXLOVID [Suspect]
     Active Substance: NIRMATRELVIR\RITONAVIR
     Indication: COVID-19 treatment
     Dosage: UNK, 2X/DAY (PAX 10 TIMES 150 MGS AND 10 TIMES 100 MGS /TAKE THE 2 TABLETS)
     Route: 048
     Dates: start: 20220828, end: 20220904
  2. CHOLECALCIFEROL [Concomitant]
     Active Substance: CHOLECALCIFEROL
     Dosage: UNK

REACTIONS (4)
  - Renal impairment [Unknown]
  - Hypoacusis [Unknown]
  - Off label use [Unknown]
  - Product use issue [Unknown]
